FAERS Safety Report 12658243 (Version 2)
Quarter: 2016Q3

REPORT INFORMATION
  Report Type: Spontaneous
  Country: US (occurrence: US)
  Receive Date: 20160817
  Receipt Date: 20160819
  Transmission Date: 20161109
  Serious: Yes (Hospitalization)
  Sender: FDA-Public Use
  Company Number: PHEH2016US009511

PATIENT
  Age: 66 Year
  Sex: Male
  Weight: 101.59 kg

DRUGS (1)
  1. ENTRESTO [Suspect]
     Active Substance: SACUBITRIL\VALSARTAN
     Indication: CARDIAC FAILURE CHRONIC
     Dosage: 50 MG, BID
     Route: 048

REACTIONS (25)
  - Hypotension [Recovering/Resolving]
  - Protein total decreased [Unknown]
  - Red cell distribution width increased [Unknown]
  - Brain natriuretic peptide increased [Unknown]
  - Activated partial thromboplastin time prolonged [Unknown]
  - Blood calcium decreased [Unknown]
  - Blood lactic acid increased [Unknown]
  - White blood cell count increased [Unknown]
  - Prothrombin time ratio increased [Unknown]
  - Blood glucose increased [Unknown]
  - Prothrombin time prolonged [Unknown]
  - Blood potassium decreased [Unknown]
  - Blood chloride decreased [Recovering/Resolving]
  - Haematocrit decreased [Unknown]
  - Infection [Unknown]
  - Calcium ionised decreased [Unknown]
  - Acute kidney injury [Recovering/Resolving]
  - Blood albumin decreased [Unknown]
  - Blood phosphorus increased [Unknown]
  - Haemoglobin decreased [Unknown]
  - Carbon dioxide increased [Unknown]
  - C-reactive protein increased [Unknown]
  - Iron binding capacity total decreased [Unknown]
  - Mean platelet volume decreased [Unknown]
  - Red blood cell count decreased [Unknown]

NARRATIVE: CASE EVENT DATE: 20151217
